FAERS Safety Report 9837366 (Version 1)
Quarter: 2014Q1

REPORT INFORMATION
  Report Type: Spontaneous
  Country: US (occurrence: US)
  Receive Date: 20140123
  Receipt Date: 20140123
  Transmission Date: 20141002
  Serious: No
  Sender: FDA-Public Use
  Company Number: US-PFIZER INC-2014020402

PATIENT
  Age: 49 Year
  Sex: Female
  Weight: 86.2 kg

DRUGS (5)
  1. GABAPENTIN [Suspect]
     Indication: NEUROPATHY PERIPHERAL
     Dosage: UNK, 3X/DAY
     Dates: start: 201303, end: 201311
  2. ALPRAZOLAM [Concomitant]
     Indication: ANXIETY
     Dosage: UNK
  3. FLUOXETINE [Concomitant]
     Indication: ANXIETY
     Dosage: UNK
  4. METFORMIN [Concomitant]
     Indication: DIABETES MELLITUS
     Dosage: UNK
  5. ZOLPIDEM TARTRATE [Concomitant]
     Indication: ANXIETY
     Dosage: UNK
     Dates: start: 201401

REACTIONS (1)
  - Drug ineffective [Unknown]
